FAERS Safety Report 4426553-5 (Version None)
Quarter: 2004Q3

REPORT INFORMATION
  Report Type: 
  Country: None (occurrence: None)
  Receive Date: 20040813
  Receipt Date: 20040808
  Transmission Date: 20050211
  Serious: Yes (Death, Hospitalization)
  Sender: FDA-Public Use
  Company Number: DL2004197

PATIENT
  Age: 22 Year
  Sex: Female

DRUGS (2)
  1. MIFEPRISTONE TABLETS, 200 MG (DANCO LABS) [Suspect]
     Indication: ABORTION INDUCED
     Dosage: 200 MG, ORAL
     Route: 048
     Dates: start: 20040108
  2. MISOPROSTOL [Suspect]
     Dosage: 800 MCG, VAGINAL
     Route: 067
     Dates: start: 20040109

REACTIONS (15)
  - ABDOMINAL PAIN [None]
  - ABORTION INDUCED [None]
  - ABSCESS [None]
  - ADNEXA UTERI MASS [None]
  - CARDIO-RESPIRATORY ARREST [None]
  - DRUG EXPOSURE DURING PREGNANCY [None]
  - FALLOPIAN TUBE DISORDER [None]
  - FEELING COLD [None]
  - GASTROINTESTINAL OEDEMA [None]
  - LETHARGY [None]
  - OEDEMA [None]
  - PALLOR [None]
  - RETROPERITONEAL OEDEMA [None]
  - UTERINE DISORDER [None]
  - WHITE BLOOD CELL COUNT INCREASED [None]
